FAERS Safety Report 10143155 (Version 1)
Quarter: 2014Q2

REPORT INFORMATION
  Report Type: Spontaneous
  Country: US (occurrence: US)
  Receive Date: 20140430
  Receipt Date: 20140430
  Transmission Date: 20141212
  Serious: No
  Sender: FDA-Public Use
  Company Number: US-BAYER-2014-062447

PATIENT
  Age: 64 Year
  Sex: Male
  Weight: 91 kg

DRUGS (1)
  1. ALEVE TABLET [Suspect]
     Dosage: 2 DF, PRN
     Route: 048
     Dates: start: 20140411

REACTIONS (2)
  - Therapeutic response changed [Recovered/Resolved]
  - Intentional product misuse [None]
